FAERS Safety Report 24610392 (Version 1)
Quarter: 2024Q4

REPORT INFORMATION
  Report Type: Spontaneous
  Country: US (occurrence: US)
  Receive Date: 20241112
  Receipt Date: 20241112
  Transmission Date: 20250114
  Serious: Yes (Other)
  Sender: COOPERSURGICAL
  Company Number: US-COOPERSURGICAL, INC.-2024CPS003292

PATIENT
  Age: 28 Year
  Sex: Female
  Weight: 63.492 kg

DRUGS (1)
  1. PARAGARD T 380A [Suspect]
     Active Substance: COPPER
     Indication: Contraception
     Dosage: UNK
     Route: 015
     Dates: start: 20080722, end: 20141023

REACTIONS (18)
  - Pelvic fracture [Unknown]
  - Device breakage [Recovered/Resolved]
  - Foreign body in urogenital tract [Recovered/Resolved]
  - Complication of device removal [Recovered/Resolved]
  - Psychological trauma [Recovered/Resolved]
  - Procedural pain [Recovered/Resolved]
  - Vaginal discharge [Unknown]
  - Attention deficit hyperactivity disorder [Not Recovered/Not Resolved]
  - Hypertension [Not Recovered/Not Resolved]
  - Migraine [Unknown]
  - Depression [Unknown]
  - Device expulsion [Recovered/Resolved]
  - Muscle spasms [Unknown]
  - Abnormal uterine bleeding [Unknown]
  - Abdominal pain [Unknown]
  - Hypomenorrhoea [Unknown]
  - Heavy menstrual bleeding [Unknown]
  - Intermenstrual bleeding [Unknown]

NARRATIVE: CASE EVENT DATE: 20101201
